FAERS Safety Report 25472476 (Version 1)
Quarter: 2025Q2

REPORT INFORMATION
  Report Type: Report from Study
  Country: DE (occurrence: DE)
  Receive Date: 20250624
  Receipt Date: 20250624
  Transmission Date: 20250717
  Serious: Yes (Other)
  Sender: ALEXION PHARMACEUTICALS
  Company Number: DE-ASTRAZENECA-202506GLO019052DE

PATIENT
  Age: 69 Year
  Weight: 100 kg

DRUGS (7)
  1. DURVALUMAB [Suspect]
     Active Substance: DURVALUMAB
     Indication: Hepatobiliary cancer
     Route: 065
  2. DURVALUMAB [Suspect]
     Active Substance: DURVALUMAB
     Route: 065
  3. DURVALUMAB [Suspect]
     Active Substance: DURVALUMAB
     Route: 065
  4. DURVALUMAB [Suspect]
     Active Substance: DURVALUMAB
     Route: 065
  5. DURVALUMAB [Suspect]
     Active Substance: DURVALUMAB
     Route: 065
  6. DURVALUMAB [Suspect]
     Active Substance: DURVALUMAB
     Route: 065
  7. DURVALUMAB [Suspect]
     Active Substance: DURVALUMAB
     Route: 065

REACTIONS (3)
  - Anaemia [Not Recovered/Not Resolved]
  - Leukopenia [Unknown]
  - Thrombocytopenia [Recovered/Resolved with Sequelae]
